FAERS Safety Report 16646977 (Version 1)
Quarter: 2019Q3

REPORT INFORMATION
  Report Type: Spontaneous
  Country: US (occurrence: US)
  Receive Date: 20190729
  Receipt Date: 20190729
  Transmission Date: 20191004
  Serious: Yes (Other)
  Sender: FDA-Public Use
  Company Number: None

PATIENT
  Age: 54 Year
  Sex: Female
  Weight: 71.55 kg

DRUGS (7)
  1. FLONASE [Concomitant]
     Active Substance: FLUTICASONE PROPIONATE
  2. ZYRTEC [Concomitant]
     Active Substance: CETIRIZINE HYDROCHLORIDE
  3. SUMATRIPTAN. [Concomitant]
     Active Substance: SUMATRIPTAN
  4. ALBUTEROL. [Concomitant]
     Active Substance: ALBUTEROL
  5. NEXIUM [Concomitant]
     Active Substance: ESOMEPRAZOLE MAGNESIUM
  6. CARAFATE [Concomitant]
     Active Substance: SUCRALFATE
  7. RX# 2267569-0617 HYDROCODONE ACETOMINOPHEN 10-325MG SUB FOR NORCO10-3 [Suspect]
     Active Substance: ACETAMINOPHEN\HYDROCODONE
     Indication: ARTHRITIS
     Dosage: ?          QUANTITY:30 TABLET(S);?
     Route: 048
     Dates: start: 20190723, end: 20190727

REACTIONS (8)
  - Product substitution issue [None]
  - Nausea [None]
  - Pain [None]
  - Palpitations [None]
  - Drug ineffective [None]
  - Vomiting [None]
  - Chills [None]
  - Anxiety [None]

NARRATIVE: CASE EVENT DATE: 20190723
